FAERS Safety Report 10184134 (Version 2)
Quarter: 2014Q2

REPORT INFORMATION
  Report Type: Spontaneous
  Country: US (occurrence: US)
  Receive Date: 20140520
  Receipt Date: 20140520
  Transmission Date: 20141212
  Serious: No
  Sender: FDA-Public Use
  Company Number: US-ASTRAZENECA-2014SE04929

PATIENT
  Age: 65 Year
  Sex: Male
  Weight: 117.9 kg

DRUGS (4)
  1. ENTOCORT EC [Suspect]
     Indication: CROHN^S DISEASE
     Route: 048
     Dates: start: 2004, end: 2004
  2. ENTOCORT EC [Suspect]
     Indication: CROHN^S DISEASE
     Route: 048
     Dates: start: 2004, end: 201311
  3. ENTOCORT EC [Suspect]
     Indication: CROHN^S DISEASE
     Route: 048
     Dates: start: 2011, end: 2011
  4. ENTOCORT EC [Suspect]
     Indication: CROHN^S DISEASE
     Dosage: 12 MG DAILY
     Route: 048
     Dates: start: 201311

REACTIONS (5)
  - Diarrhoea [Unknown]
  - Disease recurrence [Unknown]
  - Drug ineffective [Unknown]
  - Off label use [Unknown]
  - Off label use [Unknown]
